FAERS Safety Report 7303717-4 (Version None)
Quarter: 2011Q1

REPORT INFORMATION
  Report Type: 
  Country: None (occurrence: None)
  Receive Date: 20110221
  Receipt Date: 20110210
  Transmission Date: 20110831
  Serious: Yes (Hospitalization, Other)
  Sender: FDA-Public Use
  Company Number: US-ROCHE-735463

PATIENT
  Sex: Male
  Weight: 72.6 kg

DRUGS (2)
  1. ACCUTANE [Suspect]
     Indication: ACNE
     Route: 065
     Dates: start: 19821201, end: 19830301
  2. ACCUTANE [Suspect]
     Route: 065
     Dates: end: 19830401

REACTIONS (7)
  - ANAL FISTULA [None]
  - NAUSEA [None]
  - RECTAL HAEMORRHAGE [None]
  - CROHN'S DISEASE [None]
  - ABDOMINAL PAIN [None]
  - IRON DEFICIENCY ANAEMIA [None]
  - SMALL INTESTINAL OBSTRUCTION [None]
